FAERS Safety Report 8960181 (Version 4)
Quarter: 2013Q1

REPORT INFORMATION
  Report Type: Spontaneous
  Country: US (occurrence: US)
  Receive Date: 20121212
  Receipt Date: 20130219
  Transmission Date: 20140127
  Serious: Yes (Other)
  Sender: FDA-Public Use
  Company Number: US-PFIZER INC-2012308617

PATIENT
  Age: 59 Year
  Sex: Female
  Weight: 92.52 kg

DRUGS (17)
  1. DETROL LA [Suspect]
     Indication: HYPERTONIC BLADDER
     Dosage: 4 MG, 1X/DAY
     Dates: start: 2000, end: 20120817
  2. DETROL LA [Suspect]
     Indication: INCONTINENCE
  3. COZAAR [Concomitant]
     Indication: RENAL DISORDER
     Dosage: 50 MG, 1X/DAY
     Route: 048
  4. SYNTHROID [Concomitant]
     Indication: HYPOTHYROIDISM
     Dosage: 25 UG, 1X/DAY
     Route: 048
  5. PLAVIX [Concomitant]
     Indication: ILL-DEFINED DISORDER
     Dosage: 75 MG, 1X/DAY
     Route: 048
  6. PLAVIX [Concomitant]
     Indication: ARTERIAL DISORDER
  7. PLAVIX [Concomitant]
     Indication: VEIN DISORDER
  8. BABY ASPIRIN [Concomitant]
     Dosage: 1 PO DAILY
     Route: 048
  9. LORATADINE [Concomitant]
     Indication: HYPERSENSITIVITY
     Dosage: 10 MG, 1X/DAY
     Route: 048
  10. NEURONTIN [Concomitant]
     Dosage: 100 MG, 1X/DAY
  11. CALCIUM [Concomitant]
     Dosage: UNK
  12. METFORMIN HYDROCHLORIDE [Concomitant]
     Indication: DIABETES MELLITUS
     Dosage: 500 MG, 1X/DAY
     Route: 048
  13. ACTOS [Suspect]
     Dosage: UNK
  14. SIMVASTATIN [Concomitant]
     Dosage: 20 MG, 1X/DAY
     Route: 048
  15. CYANOCOBALAMIN [Concomitant]
     Dosage: 1 PO DAILY
     Route: 048
  16. ULTRACET [Concomitant]
     Dosage: 37.5 MG-325 MG TABLET 1 TABLET PO DAILY
     Route: 048
  17. CALCIUM WITH VITAMIN D [Concomitant]
     Dosage: 100 UNIT CAPSULE 1 CAPSULE PO BID
     Route: 048

REACTIONS (11)
  - Urinary tract infection [Unknown]
  - Urinary incontinence [Recovered/Resolved]
  - Mixed incontinence [Recovered/Resolved]
  - Blood urine present [Unknown]
  - Urinary retention [Unknown]
  - Haematuria [Unknown]
  - Uterine disorder [Unknown]
  - Gallbladder disorder [Unknown]
  - Carotid artery disease [Unknown]
  - Drug ineffective [Unknown]
  - Drug ineffective [Recovered/Resolved]
